FAERS Safety Report 8597306-1 (Version None)
Quarter: 2012Q3

REPORT INFORMATION
  Report Type: 
  Country: None (occurrence: None)
  Receive Date: 20120816
  Receipt Date: 20120810
  Transmission Date: 20120928
  Serious: No
  Sender: FDA-Public Use
  Company Number: US-PFIZER INC-2012196084

PATIENT
  Age: 55 Year

DRUGS (2)
  1. NIFEDIPINE [Suspect]
     Dosage: UNK
  2. LISINOPRIL [Suspect]
     Dosage: UNK

REACTIONS (4)
  - SKIN BURNING SENSATION [None]
  - ERYTHEMA [None]
  - DIZZINESS [None]
  - DRUG HYPERSENSITIVITY [None]
